FAERS Safety Report 7545664-9 (Version None)
Quarter: 2011Q2

REPORT INFORMATION
  Report Type: 
  Country: None (occurrence: None)
  Receive Date: 20110524
  Receipt Date: 20110209
  Transmission Date: 20111010
  Serious: No
  Sender: FDA-Public Use
  Company Number: 027250

PATIENT
  Sex: Male

DRUGS (4)
  1. FISH OIL [Concomitant]
  2. CIMZIA [Suspect]
     Indication: CROHN'S DISEASE
     Dosage: (400 MG 1X/28 DAYS SUBCUTANEOUS)
     Route: 058
     Dates: start: 20090409
  3. MULTIVITAMIN /01229101/ [Concomitant]
  4. SERTRALINE HYDROCHLORIDE [Concomitant]

REACTIONS (1)
  - HEADACHE [None]
